FAERS Safety Report 11103612 (Version 1)
Quarter: 2015Q2

REPORT INFORMATION
  Report Type: Spontaneous
  Country: US (occurrence: None)
  Receive Date: 20150508
  Receipt Date: 20150508
  Transmission Date: 20150821
  Serious: Yes (Other)
  Sender: FDA-Public Use
  Company Number: None

PATIENT
  Age: 72 Year
  Sex: Male

DRUGS (1)
  1. XTANDI [Suspect]
     Active Substance: ENZALUTAMIDE
     Dosage: DOSE FORM: ORAL
     Route: 048
     Dates: start: 201502

REACTIONS (6)
  - Decreased appetite [None]
  - Insomnia [None]
  - Neuralgia [None]
  - Neuropathy peripheral [None]
  - Dysgeusia [None]
  - Pain in extremity [None]

NARRATIVE: CASE EVENT DATE: 20150504
